FAERS Safety Report 6301821-0 (Version None)
Quarter: 2009Q3

REPORT INFORMATION
  Report Type: 
  Country: None (occurrence: None)
  Receive Date: 20090805
  Receipt Date: 20090724
  Transmission Date: 20100115
  Serious: Yes (Death, Hospitalization)
  Sender: FDA-Public Use
  Company Number: 84591

PATIENT
  Age: 59 Year
  Sex: Female

DRUGS (2)
  1. CYTARABINE [Suspect]
     Indication: ACUTE MYELOID LEUKAEMIA
     Dosage: 3G/M2 EVERY 12 HOURS, DAYS1-3 +9-10
  2. MITOXANTRONE HYDROCHLORIDE [Suspect]
     Dosage: 10MG/M2, DAYS 3,4,5,11 AND 12

REACTIONS (23)
  - AGITATION [None]
  - ANAL INFECTION [None]
  - ANXIETY [None]
  - BONE MARROW FAILURE [None]
  - BRAIN HERNIATION [None]
  - BRAIN OEDEMA [None]
  - CEREBRAL INFARCTION [None]
  - CHOLESTASIS [None]
  - COMA [None]
  - CONTINUOUS HAEMODIAFILTRATION [None]
  - CONVULSION [None]
  - ENCEPHALOPATHY [None]
  - FEBRILE NEUTROPENIA [None]
  - GAZE PALSY [None]
  - GRAND MAL CONVULSION [None]
  - HEPATIC STEATOSIS [None]
  - HYPERAMMONAEMIA [None]
  - METABOLIC ALKALOSIS [None]
  - MUSCLE RIGIDITY [None]
  - PUPILS UNEQUAL [None]
  - RESPIRATORY ALKALOSIS [None]
  - SOFT TISSUE INFECTION [None]
  - UNRESPONSIVE TO STIMULI [None]
